FAERS Safety Report 6315585-8 (Version None)
Quarter: 2009Q3

REPORT INFORMATION
  Report Type: 
  Country: None (occurrence: None)
  Receive Date: 20090818
  Receipt Date: 20090807
  Transmission Date: 20100115
  Serious: Yes (Other)
  Sender: FDA-Public Use
  Company Number: 2009AL005331

PATIENT
  Sex: Female

DRUGS (2)
  1. FLUOXETINE [Suspect]
     Indication: PREMENSTRUAL SYNDROME
     Dosage: 20 MG;QD
     Dates: start: 20090212
  2. ALCOHOL [Concomitant]

REACTIONS (1)
  - SOMNOLENCE [None]
